FAERS Safety Report 18600218 (Version 4)
Quarter: 2021Q4

REPORT INFORMATION
  Report Type: Spontaneous
  Country: JP (occurrence: JP)
  Receive Date: 20201210
  Receipt Date: 20211118
  Transmission Date: 20220303
  Serious: Yes (Death, Life-Threatening, Hospitalization, Disabling, Other)
  Sender: FDA-Public Use
  Company Number: JP-JNJFOC-A-CH2017-153879

PATIENT
  Age: 78 Year
  Sex: Female
  Weight: 37 kg

DRUGS (50)
  1. OPSUMIT [Suspect]
     Active Substance: MACITENTAN
     Indication: Pulmonary arterial hypertension
     Dosage: 10 MG, QD, //2019
     Route: 048
     Dates: start: 20160716
  2. UPTRAVI [Suspect]
     Active Substance: SELEXIPAG
     Indication: Pulmonary arterial hypertension
     Dosage: 0.2 MG, BID
     Route: 048
     Dates: start: 20170224, end: 20170309
  3. UPTRAVI [Suspect]
     Active Substance: SELEXIPAG
     Dosage: 0.4 MG, BID
     Route: 048
     Dates: start: 20170310, end: 20170323
  4. UPTRAVI [Suspect]
     Active Substance: SELEXIPAG
     Dosage: 0.6 MG, BID
     Route: 048
     Dates: start: 20170324, end: 20170406
  5. UPTRAVI [Suspect]
     Active Substance: SELEXIPAG
     Dosage: 0.8 MG, BID
     Route: 048
     Dates: start: 20170407, end: 20180125
  6. UPTRAVI [Suspect]
     Active Substance: SELEXIPAG
     Dosage: 1 MG, BID
     Route: 048
     Dates: start: 20180126, end: 20180329
  7. UPTRAVI [Suspect]
     Active Substance: SELEXIPAG
     Dosage: 1.2 MG, QD
     Route: 048
     Dates: start: 20180330, end: 20180828
  8. UPTRAVI [Suspect]
     Active Substance: SELEXIPAG
     Dosage: 1 MG, BID
     Route: 048
     Dates: start: 20180829
  9. UPTRAVI [Suspect]
     Active Substance: SELEXIPAG
     Dosage: 1.6 MG, BID, 06/FEB/2019
     Route: 048
     Dates: start: 20181207
  10. ADCIRCA [Suspect]
     Active Substance: TADALAFIL
     Indication: Pulmonary arterial hypertension
     Dosage: 20 MG, BID
     Route: 048
     Dates: start: 20161118, end: 20180628
  11. ADCIRCA [Suspect]
     Active Substance: TADALAFIL
     Dosage: 20 MG, QD
     Route: 048
     Dates: start: 20180629, end: 20180823
  12. ADCIRCA [Suspect]
     Active Substance: TADALAFIL
     Dosage: 20 MG, BID, //2019
     Route: 048
     Dates: start: 20180824
  13. LASIX [Suspect]
     Active Substance: FUROSEMIDE
     Indication: Right ventricular failure
     Dosage: 40 MG, QD
     Route: 048
     Dates: start: 20170113, end: 20180619
  14. LASIX [Suspect]
     Active Substance: FUROSEMIDE
     Indication: Pleural effusion
     Route: 048
     Dates: start: 20180109, end: 20180619
  15. LASIX [Suspect]
     Active Substance: FUROSEMIDE
     Indication: Ascites
  16. LEVETIRACETAM [Suspect]
     Active Substance: LEVETIRACETAM
     Indication: Subdural haematoma
     Dosage: 500 MG, QD
     Route: 042
     Dates: start: 20180617, end: 20180618
  17. LEVETIRACETAM [Suspect]
     Active Substance: LEVETIRACETAM
     Dosage: 500 MG, QD
     Route: 042
     Dates: start: 20180619, end: 20180622
  18. SPIRONOLACTONE [Suspect]
     Active Substance: SPIRONOLACTONE
     Indication: Right ventricular failure
     Dosage: 25 MG, QD
     Route: 048
     Dates: start: 20161118, end: 20180810
  19. SPIRONOLACTONE [Suspect]
     Active Substance: SPIRONOLACTONE
     Indication: Pleural effusion
     Dosage: 25 MG
     Route: 048
     Dates: start: 20180619, end: 20180628
  20. SPIRONOLACTONE [Suspect]
     Active Substance: SPIRONOLACTONE
     Indication: Ascites
     Route: 048
     Dates: start: 20180718, end: 20180810
  21. FUROSEMIDE [Concomitant]
     Active Substance: FUROSEMIDE
     Indication: Pleural effusion
     Dosage: 10 MG, QD
     Route: 048
     Dates: start: 20180617
  22. FUROSEMIDE [Concomitant]
     Active Substance: FUROSEMIDE
     Indication: Ascites
  23. FUROSEMIDE [Concomitant]
     Active Substance: FUROSEMIDE
     Indication: Right ventricular failure
  24. BERAPROST SODIUM [Concomitant]
     Active Substance: BERAPROST SODIUM
     Indication: Pulmonary arterial hypertension
     Dates: start: 20160414, end: 20170223
  25. AMLODIPINE [Concomitant]
     Active Substance: AMLODIPINE BESYLATE
     Indication: Hypertension
     Dosage: 5 MG, QD
     Dates: end: 20180619
  26. AMLODIPINE [Concomitant]
     Active Substance: AMLODIPINE BESYLATE
     Route: 048
     Dates: start: 20180624, end: 20180624
  27. AMLODIPINE [Concomitant]
     Active Substance: AMLODIPINE BESYLATE
     Route: 048
     Dates: start: 20180625, end: 20180628
  28. AMLODIPINE [Concomitant]
     Active Substance: AMLODIPINE BESYLATE
     Route: 048
     Dates: start: 20180629, end: 20180713
  29. AMLODIPINE [Concomitant]
     Active Substance: AMLODIPINE BESYLATE
     Route: 048
     Dates: start: 20180714, end: 20180811
  30. ASPIRIN [Concomitant]
     Active Substance: ASPIRIN
     Dosage: 100 MG, QD
     Dates: end: 20180617
  31. REVATIO [Concomitant]
     Active Substance: SILDENAFIL CITRATE
     Indication: Pulmonary arterial hypertension
     Route: 048
     Dates: start: 20130809, end: 20161111
  32. OXYGEN [Concomitant]
     Active Substance: OXYGEN
     Indication: Right ventricular failure
  33. LOPEMIN [Concomitant]
     Indication: Diarrhoea
     Dosage: 1 MG, QD
     Dates: start: 20170915
  34. OLMESARTAN MEDOXOMIL [Concomitant]
     Active Substance: OLMESARTAN MEDOXOMIL
     Indication: Hypertension
     Dosage: 10 MG, QD
     Dates: start: 20180110
  35. FAMOTIDINE [Concomitant]
     Active Substance: FAMOTIDINE
     Indication: Prophylaxis
     Dosage: 20 MG, QD
     Dates: start: 20180617, end: 20180617
  36. LANSOPRAZOLE [Concomitant]
     Active Substance: LANSOPRAZOLE
     Indication: Prophylaxis
     Dosage: 300 MG, QD
     Dates: start: 20180617, end: 20180618
  37. CEFAZOLIN SODIUM [Concomitant]
     Active Substance: CEFAZOLIN SODIUM
     Indication: Pyrexia
     Dosage: 1 G, QD
     Dates: start: 20180617, end: 20180619
  38. CEFAZOLIN SODIUM [Concomitant]
     Active Substance: CEFAZOLIN SODIUM
     Indication: Prophylaxis
     Dosage: 1 G, QD
     Dates: start: 20180728, end: 20180806
  39. CEFAZOLIN SODIUM [Concomitant]
     Active Substance: CEFAZOLIN SODIUM
     Indication: Urinary tract infection
  40. REMIFENTANIL [Concomitant]
     Active Substance: REMIFENTANIL
     Indication: Surgery
     Dosage: 2 MG, QD
     Dates: start: 20180618, end: 20180618
  41. FENTANYL [Concomitant]
     Active Substance: FENTANYL
     Indication: Surgery
     Dosage: 0.1 MG, QD
     Dates: start: 20180618, end: 20180620
  42. FENTANYL [Concomitant]
     Active Substance: FENTANYL
     Indication: Prophylaxis
  43. DOBUTAMINE HYDROCHLORIDE [Concomitant]
     Active Substance: DOBUTAMINE HYDROCHLORIDE
     Indication: Cardiac failure
     Dosage: 1 DF, QD
     Dates: start: 20180621
  44. DOBUTAMINE HYDROCHLORIDE [Concomitant]
     Active Substance: DOBUTAMINE HYDROCHLORIDE
     Indication: Prophylaxis
  45. DOBUTAMINE HYDROCHLORIDE [Concomitant]
     Active Substance: DOBUTAMINE HYDROCHLORIDE
     Indication: Right ventricular failure
  46. HEPARIN SODIUM [Concomitant]
     Active Substance: HEPARIN SODIUM
     Indication: Prophylaxis
     Dosage: 100 IU, QD
     Dates: start: 20180626, end: 20180627
  47. POTASSIUM ASPARTATE [Concomitant]
     Active Substance: POTASSIUM ASPARTATE
     Indication: Hypokalaemia
     Dosage: 10 MEQ, QD
     Dates: start: 20181227, end: 20181228
  48. EPLERENONE [Concomitant]
     Active Substance: EPLERENONE
     Indication: Hypertension
  49. PREDONINE [Concomitant]
     Active Substance: PREDNISOLONE
     Indication: Scleroderma
     Dosage: UNK
     Dates: start: 20181208, end: 20181220
  50. PREDONINE [Concomitant]
     Active Substance: PREDNISOLONE
     Indication: Pleural effusion

REACTIONS (44)
  - Pulmonary hypertension [Fatal]
  - Condition aggravated [Fatal]
  - Right ventricular failure [Fatal]
  - Pleural effusion [Fatal]
  - Ascites [Fatal]
  - General physical health deterioration [Fatal]
  - Systemic scleroderma [Fatal]
  - Pneumonia aspiration [Not Recovered/Not Resolved]
  - Right ventricular failure [Recovered/Resolved]
  - Renal impairment [Recovered/Resolved]
  - Aortic aneurysm [Not Recovered/Not Resolved]
  - Primary biliary cholangitis [Recovering/Resolving]
  - Brain herniation [Recovered/Resolved]
  - Oxygen saturation abnormal [Recovering/Resolving]
  - Melaena [Recovered/Resolved]
  - Hypoxia [Recovered/Resolved]
  - Subdural haematoma [Recovered/Resolved]
  - Craniotomy [Recovered/Resolved]
  - Pneumonia bacterial [Recovered/Resolved]
  - Pericardial effusion [Recovered/Resolved]
  - Pancytopenia [Recovering/Resolving]
  - Cardiac failure [Recovering/Resolving]
  - Brain natriuretic peptide increased [Recovering/Resolving]
  - Tracheostomy [Unknown]
  - Nephrogenic anaemia [Recovering/Resolving]
  - Iron deficiency anaemia [Recovering/Resolving]
  - Hypokalaemia [Not Recovered/Not Resolved]
  - Chronic gastritis [Recovered/Resolved]
  - Headache [Recovering/Resolving]
  - Platelet count decreased [Recovering/Resolving]
  - Treatment noncompliance [Unknown]
  - Diarrhoea [Recovering/Resolving]
  - Blood pressure abnormal [Recovered/Resolved]
  - Renal impairment [Recovered/Resolved]
  - Insomnia [Unknown]
  - Productive cough [Unknown]
  - Haemoptysis [Recovered/Resolved]
  - Hypotension [Recovered/Resolved]
  - Urinary tract infection [Recovered/Resolved]
  - Pyrexia [Recovered/Resolved]
  - Hepatic enzyme increased [Recovered/Resolved]
  - Depression [Unknown]
  - Fall [Unknown]
  - Blood pressure decreased [Recovered/Resolved]

NARRATIVE: CASE EVENT DATE: 20161118
